FAERS Safety Report 17717813 (Version 3)
Quarter: 2020Q3

REPORT INFORMATION
  Report Type: Spontaneous
  Country: FR (occurrence: FR)
  Receive Date: 20200428
  Receipt Date: 20200731
  Transmission Date: 20201102
  Serious: Yes (Other)
  Sender: FDA-Public Use
  Company Number: FR-ACCORD-179953

PATIENT
  Age: 22 Month
  Sex: Female
  Weight: 14.8 kg

DRUGS (8)
  1. TOLVAPTAN [Interacting]
     Active Substance: TOLVAPTAN
     Indication: HYPONATRAEMIA
     Dosage: 0.33 MG/KG/DAY
  2. TOLVAPTAN [Interacting]
     Active Substance: TOLVAPTAN
     Indication: HYPONATRAEMIA
     Dosage: PROGRESSIVELY INCREASED TO 40 MG OVER 4 DAYS
  3. FUROSEMIDE. [Suspect]
     Active Substance: FUROSEMIDE
     Indication: NEPHROTIC SYNDROME
  4. TOLVAPTAN [Interacting]
     Active Substance: TOLVAPTAN
     Indication: HYPONATRAEMIA
     Dosage: TOLVAPTAN WAS PROGRESSIVELY DECREASED BY 1 MG/KG/DAY EVERY 2 WEEKS
  5. TACROLIMUS. [Concomitant]
     Active Substance: TACROLIMUS
     Indication: NEPHROTIC SYNDROME
     Route: 048
  6. AMILORIDE [Concomitant]
     Active Substance: AMILORIDE
     Indication: NEPHROTIC SYNDROME
  7. AMLODIPINE [Concomitant]
     Active Substance: AMLODIPINE BESYLATE
     Indication: HYPERTENSION
  8. RITUXIMAB. [Concomitant]
     Active Substance: RITUXIMAB
     Indication: NEPHROTIC SYNDROME

REACTIONS (2)
  - Therapeutic product effect decreased [Unknown]
  - Drug interaction [Unknown]
